FAERS Safety Report 18743713 (Version 1)
Quarter: 2021Q1

REPORT INFORMATION
  Report Type: Other
  Country: FR (occurrence: FR)
  Receive Date: 20210115
  Receipt Date: 20210115
  Transmission Date: 20210419
  Serious: Yes (Hospitalization, Other)
  Sender: FDA-Public Use
  Company Number: FR-APOTEX-2021AP001169

PATIENT
  Sex: Female

DRUGS (4)
  1. ZYPREXA [Suspect]
     Active Substance: OLANZAPINE
     Indication: DEPRESSION
     Dosage: 10 MILLIGRAM, QD
     Route: 064
     Dates: end: 20201209
  2. DEROXAT [Suspect]
     Active Substance: PAROXETINE HYDROCHLORIDE
     Indication: DEPRESSION
     Dosage: 20 MG, QD
     Route: 064
     Dates: end: 20201209
  3. ZOPICLON [Suspect]
     Active Substance: ZOPICLONE
     Indication: INSOMNIA
     Dosage: 1 DOSAGE FORM, QD
     Route: 064
     Dates: end: 20201209
  4. SERESTA [Suspect]
     Active Substance: OXAZEPAM
     Indication: DEPRESSION
     Dosage: 30 MILLIGRAM, QD
     Route: 064
     Dates: end: 20201209

REACTIONS (3)
  - Foetal exposure during pregnancy [Unknown]
  - Infantile apnoea [Recovered/Resolved]
  - Somnolence neonatal [Recovered/Resolved]

NARRATIVE: CASE EVENT DATE: 20201209
